FAERS Safety Report 20171156 (Version 1)
Quarter: 2021Q4

REPORT INFORMATION
  Report Type: Spontaneous
  Country: CA (occurrence: CA)
  Receive Date: 20211210
  Receipt Date: 20211210
  Transmission Date: 20220304
  Serious: Yes (Other)
  Sender: FDA-Public Use
  Company Number: CA-ELI_LILLY_AND_COMPANY-CA202112001768

PATIENT
  Age: 61 Year
  Sex: Female

DRUGS (8)
  1. CYMBALTA [Suspect]
     Active Substance: DULOXETINE HYDROCHLORIDE
     Indication: Pain
     Dosage: 60 MG, UNKNOWN
     Route: 065
  2. BENLYSTA [Suspect]
     Active Substance: BELIMUMAB
     Indication: Systemic lupus erythematosus
     Dosage: UNK UNK, UNKNOWN
     Route: 058
  3. CIPROFLOXACIN [Suspect]
     Active Substance: CIPROFLOXACIN
     Indication: Nephrolithiasis
     Dosage: UNK UNK, UNKNOWN
     Route: 065
  4. CLARITHROMYCIN [Suspect]
     Active Substance: CLARITHROMYCIN
     Indication: Nephrolithiasis
     Dosage: UNK UNK, UNKNOWN
     Route: 065
  5. CLARITHROMYCIN [Suspect]
     Active Substance: CLARITHROMYCIN
     Indication: Nephrolithiasis
     Dosage: UNK UNK, UNKNOWN
     Route: 065
  6. OLMESARTAN MEDOXOMIL [Suspect]
     Active Substance: OLMESARTAN MEDOXOMIL
     Indication: Blood pressure abnormal
     Dosage: UNK UNK, UNKNOWN
     Route: 048
  7. PREDNISONE [Suspect]
     Active Substance: PREDNISONE
     Indication: Product used for unknown indication
     Dosage: UNK UNK, UNKNOWN
     Route: 065
  8. TYLENOL [Suspect]
     Active Substance: ACETAMINOPHEN
     Indication: Arthritis
     Dosage: UNK UNK, UNKNOWN
     Route: 065

REACTIONS (29)
  - Arthritis [Recovered/Resolved]
  - Arthropathy [Recovered/Resolved]
  - Blood cholesterol abnormal [Recovered/Resolved]
  - Blood pressure decreased [Recovered/Resolved]
  - Calcinosis [Recovered/Resolved]
  - Diabetes mellitus inadequate control [Recovered/Resolved]
  - Hand deformity [Recovered/Resolved]
  - Inflammation [Recovered/Resolved]
  - Joint dislocation [Recovered/Resolved]
  - Kidney infection [Recovered/Resolved]
  - Multiple allergies [Recovered/Resolved]
  - Nephrolithiasis [Recovered/Resolved]
  - Pain [Recovered/Resolved]
  - Personality change due to a general medical condition [Recovered/Resolved]
  - Renal disorder [Recovered/Resolved]
  - SLE arthritis [Recovered/Resolved]
  - Skin induration [Recovered/Resolved]
  - Spinal disorder [Recovered/Resolved]
  - Urine abnormality [Recovered/Resolved]
  - Varicose vein [Recovered/Resolved]
  - Vein disorder [Recovered/Resolved]
  - Poor quality sleep [Recovered/Resolved]
  - Hypersomnia [Recovered/Resolved]
  - Arthralgia [Recovered/Resolved]
  - Gait disturbance [Recovered/Resolved]
  - Blood pressure increased [Recovered/Resolved]
  - Nasopharyngitis [Recovered/Resolved]
  - Drug ineffective [Recovered/Resolved]
  - Product dose omission issue [Recovered/Resolved]
